FAERS Safety Report 7330533-X (Version None)
Quarter: 2011Q1

REPORT INFORMATION
  Report Type: 
  Country: None (occurrence: None)
  Receive Date: 20110304
  Receipt Date: 20110223
  Transmission Date: 20110831
  Serious: No
  Sender: FDA-Public Use
  Company Number: US-BIOGENIDEC-2011BI007308

PATIENT
  Age: 33 Year
  Sex: Female

DRUGS (2)
  1. TYSABRI [Suspect]
     Indication: MULTIPLE SCLEROSIS
     Route: 042
     Dates: start: 20110128
  2. TOPAMAX [Concomitant]
     Indication: MIGRAINE
     Dates: start: 20080101

REACTIONS (3)
  - MIGRAINE [None]
  - CHEST PAIN [None]
  - EYE PAIN [None]
